FAERS Safety Report 6763295-5 (Version None)
Quarter: 2010Q2

REPORT INFORMATION
  Report Type: 
  Country: None (occurrence: None)
  Receive Date: 20100610
  Receipt Date: 20100601
  Transmission Date: 20101027
  Serious: Yes (Hospitalization, Disabling)
  Sender: FDA-Public Use
  Company Number: JP-JNJFOC-20100210620

PATIENT
  Sex: Female
  Weight: 44 kg

DRUGS (9)
  1. DOXORUBICIN HCL [Suspect]
     Indication: OVARIAN CANCER RECURRENT
     Dosage: COURSE 2
     Route: 042
  2. DOXORUBICIN HCL [Suspect]
     Dosage: COURSE 1
     Route: 042
  3. HERBESSER [Concomitant]
     Route: 048
  4. NICORANDIL [Concomitant]
     Route: 048
  5. ASPIRIN [Concomitant]
     Route: 048
  6. WARFARIN [Concomitant]
     Route: 048
  7. AZUNOL [Concomitant]
     Indication: PROPHYLAXIS
     Route: 049
  8. RINDERON [Concomitant]
     Indication: VOMITING
     Route: 048
  9. PRIMPERAN TAB [Concomitant]
     Indication: VOMITING
     Route: 048

REACTIONS (2)
  - GRANULOCYTOPENIA [None]
  - INTESTINAL OBSTRUCTION [None]
